FAERS Safety Report 6821144-0 (Version None)
Quarter: 2010Q3

REPORT INFORMATION
  Report Type: 
  Country: None (occurrence: None)
  Receive Date: 20100707
  Receipt Date: 20080218
  Transmission Date: 20110219
  Serious: No
  Sender: FDA-Public Use
  Company Number: US-PFIZER INC-2008015615

PATIENT
  Age: 39 Year
  Sex: Male
  Weight: 113.4 kg

DRUGS (5)
  1. ZOLOFT [Suspect]
     Indication: PANIC REACTION
  2. ZOLOFT [Suspect]
     Indication: ANXIETY
  3. XANAX [Suspect]
     Indication: ANXIETY
  4. DRUG, UNSPECIFIED [Suspect]
     Indication: PANIC REACTION
  5. DRUG, UNSPECIFIED [Suspect]
     Indication: ANXIETY

REACTIONS (4)
  - ADVERSE DRUG REACTION [None]
  - DRUG INEFFECTIVE [None]
  - PARAESTHESIA [None]
  - SEXUAL DYSFUNCTION [None]
